FAERS Safety Report 8244717-X (Version None)
Quarter: 2012Q1

REPORT INFORMATION
  Report Type: 
  Country: None (occurrence: None)
  Receive Date: 20120329
  Receipt Date: 20110210
  Transmission Date: 20120608
  Serious: No
  Sender: FDA-Public Use
  Company Number: US-MYLANLABS-2011S1003086

PATIENT
  Age: 42 Year
  Sex: Female

DRUGS (2)
  1. EFFEXOR [Concomitant]
     Route: 048
     Dates: start: 20110117
  2. FENTANYL-100 [Suspect]
     Indication: PAIN
     Dosage: CHANGED Q72H THEN Q48H.
     Route: 062
     Dates: start: 20100101

REACTIONS (3)
  - HEADACHE [None]
  - DRUG WITHDRAWAL SYNDROME [None]
  - MOOD DISORDER DUE TO A GENERAL MEDICAL CONDITION [None]
